FAERS Safety Report 25903410 (Version 1)
Quarter: 2025Q4

REPORT INFORMATION
  Report Type: Spontaneous
  Country: US (occurrence: US)
  Receive Date: 20251009
  Receipt Date: 20251009
  Transmission Date: 20260118
  Serious: No
  Sender: CB FLEET
  Company Number: US-PRESTIGE-202508-US-002456

PATIENT
  Age: 75 Year
  Sex: Female

DRUGS (2)
  1. MONISTAT 3 COMBINATION PACK [Suspect]
     Active Substance: MICONAZOLE NITRATE
     Indication: Fungal infection
     Dosage: I COULD ONLY STICK IT IN A LITTLE BIT. I STILL PUSHED TO PRODUCT INTO MY VAGINA.
  2. MONISTAT 3 COMBINATION PACK [Suspect]
     Active Substance: MICONAZOLE NITRATE

REACTIONS (2)
  - Product use complaint [None]
  - Vulvovaginal pain [Recovered/Resolved]
